FAERS Safety Report 20746175 (Version 1)
Quarter: 2022Q2

REPORT INFORMATION
  Report Type: Spontaneous
  Country: US (occurrence: US)
  Receive Date: 20220425
  Receipt Date: 20220425
  Transmission Date: 20220720
  Serious: No
  Sender: FDA-Public Use
  Company Number: US-JNJFOC-20220442922

PATIENT

DRUGS (1)
  1. IMODIUM A-D [Suspect]
     Active Substance: LOPERAMIDE HYDROCHLORIDE
     Indication: Product used for unknown indication
     Dosage: TOTAL OF 2 CAPLETS 2 DAYS AGO
     Route: 065

REACTIONS (2)
  - Diarrhoea [Unknown]
  - Inappropriate schedule of product administration [Unknown]
